FAERS Safety Report 7000388-1 (Version None)
Quarter: 2010Q3

REPORT INFORMATION
  Report Type: 
  Country: None (occurrence: None)
  Receive Date: 20100920
  Receipt Date: 20091030
  Transmission Date: 20110219
  Serious: No
  Sender: FDA-Public Use
  Company Number: US-ASTRAZENECA-2009UW18577

PATIENT
  Age: 39 Year
  Sex: Female
  Weight: 104.3 kg

DRUGS (9)
  1. SEROQUEL [Suspect]
     Indication: DEPRESSION
     Route: 048
     Dates: start: 20050101, end: 20080101
  2. GEODON [Concomitant]
  3. TRIHEXYPHENIDYL HCL [Concomitant]
  4. ZOLOFT [Concomitant]
  5. XANAX [Concomitant]
  6. CRESTOR [Concomitant]
  7. TRICOR [Concomitant]
  8. NAPROXEN [Concomitant]
  9. METFORMIN [Concomitant]

REACTIONS (6)
  - AMNESIA [None]
  - BACK PAIN [None]
  - BLOOD CHOLESTEROL INCREASED [None]
  - EATING DISORDER [None]
  - HYPERLIPIDAEMIA [None]
  - TYPE 2 DIABETES MELLITUS [None]
